FAERS Safety Report 19726288 (Version 2)
Quarter: 2021Q4

REPORT INFORMATION
  Report Type: Spontaneous
  Country: US (occurrence: US)
  Receive Date: 20210820
  Receipt Date: 20211214
  Transmission Date: 20220303
  Serious: Yes (Death)
  Sender: FDA-Public Use
  Company Number: US-GLOBAL BLOOD THERAPEUTICS INC-US-GBT-21-02844

PATIENT
  Sex: Male

DRUGS (4)
  1. OXBRYTA [Suspect]
     Active Substance: VOXELOTOR
     Indication: Sickle cell disease
     Route: 048
     Dates: start: 2020, end: 2021
  2. FOLIC ACID [Concomitant]
     Active Substance: FOLIC ACID
     Indication: Product used for unknown indication
     Route: 048
  3. ROBAXIN [Concomitant]
     Active Substance: METHOCARBAMOL
     Indication: Pain
     Route: 048
  4. PERCOCET [Concomitant]
     Active Substance: ACETAMINOPHEN\OXYCODONE HYDROCHLORIDE
     Indication: Pain
     Route: 048

REACTIONS (4)
  - Multiple organ dysfunction syndrome [Fatal]
  - Acute chest syndrome [Fatal]
  - Pulmonary embolism [Fatal]
  - Therapy cessation [Unknown]

NARRATIVE: CASE EVENT DATE: 20210101
